FAERS Safety Report 5976145-1 (Version None)
Quarter: 2008Q4

REPORT INFORMATION
  Report Type: 
  Country: None (occurrence: None)
  Receive Date: 20081202
  Receipt Date: 20081201
  Transmission Date: 20090506
  Serious: Yes (Hospitalization)
  Sender: FDA-Public Use
  Company Number: DE-TEVA-180658ISR

PATIENT
  Sex: Male

DRUGS (6)
  1. COPAXONE [Suspect]
     Indication: MULTIPLE SCLEROSIS
     Route: 058
     Dates: start: 20081001, end: 20081109
  2. GABAPENTIN [Concomitant]
     Indication: NEURALGIA
     Route: 048
     Dates: start: 20070101
  3. ERGENYL CHRONO [Concomitant]
     Indication: EPILEPSY
     Route: 048
     Dates: start: 20070101
  4. TRIMIPRAMINE MALEATE [Concomitant]
     Indication: DEPRESSION
     Route: 048
     Dates: start: 20070101
  5. MIRTAZAPINE [Concomitant]
     Indication: DEPRESSION
     Route: 048
     Dates: start: 20080101
  6. ACETYLSALICYLIC ACID SRT [Concomitant]
     Indication: THROMBOANGIITIS OBLITERANS
     Route: 048
     Dates: start: 20060101

REACTIONS (2)
  - INJECTION SITE INDURATION [None]
  - INJECTION SITE SWELLING [None]
